FAERS Safety Report 10039123 (Version 2)
Quarter: 2014Q2

REPORT INFORMATION
  Report Type: Report from Study
  Country: US (occurrence: US)
  Receive Date: 20140326
  Receipt Date: 20140404
  Transmission Date: 20141212
  Serious: Yes (Other)
  Sender: FDA-Public Use
  Company Number: PHEH2014US005459

PATIENT
  Age: 65 Year
  Sex: Female
  Weight: 62.59 kg

DRUGS (9)
  1. GILENYA [Suspect]
     Indication: RELAPSING-REMITTING MULTIPLE SCLEROSIS
     Dosage: 0.5 MG, QD
     Route: 048
     Dates: start: 20120924
  2. ALPRAZOLAM [Concomitant]
     Dosage: 0.25 MG, BID
     Route: 048
     Dates: start: 20120322
  3. CELEBREX [Concomitant]
     Dosage: 200 MG, QD
     Route: 048
     Dates: start: 20131230
  4. CLOBETASOL [Concomitant]
     Dosage: UNK, BID
  5. ESCITALOPRAM OXALATE [Concomitant]
     Dosage: 20 MG, QD
     Route: 048
     Dates: start: 20120130
  6. FLUCONAZOLE [Concomitant]
     Dosage: 150 MG, QD
     Route: 048
     Dates: start: 20131220
  7. METOPROLOL SUCCINATE [Concomitant]
     Dosage: 50 MG, QD
     Route: 048
     Dates: start: 20120322
  8. MODAFINIL [Concomitant]
     Dosage: 200 MG, BID
     Route: 048
     Dates: start: 20120618
  9. ZOLPIDEM TARTRATE [Concomitant]
     Dosage: 5 MG, UNK
     Route: 048
     Dates: start: 20120130

REACTIONS (4)
  - Lichen sclerosus [Recovered/Resolved]
  - Pain [Recovered/Resolved]
  - Lichen planus [Recovered/Resolved]
  - Onychomadesis [Recovered/Resolved]
